FAERS Safety Report 5417176-X (Version None)
Quarter: 2007Q3

REPORT INFORMATION
  Report Type: 
  Country: None (occurrence: None)
  Receive Date: 20070816
  Receipt Date: 20070814
  Transmission Date: 20080115
  Serious: Yes (Hospitalization)
  Sender: FDA-Public Use
  Company Number: CA-ROXANE LABORATORIES, INC-2007-DE-04797GD

PATIENT

DRUGS (1)
  1. PREDNISONE TAB [Suspect]
     Indication: WEGENER'S GRANULOMATOSIS

REACTIONS (1)
  - STAPHYLOCOCCAL SEPSIS [None]
